FAERS Safety Report 13100516 (Version 1)
Quarter: 2017Q1

REPORT INFORMATION
  Report Type: Spontaneous
  Country: US (occurrence: US)
  Receive Date: 20170109
  Receipt Date: 20170109
  Transmission Date: 20170428
  Serious: No
  Sender: FDA-Public Use
  Company Number: None

PATIENT
  Age: 69 Year
  Sex: Male
  Weight: 69.75 kg

DRUGS (1)
  1. GABAPENTIN. [Suspect]
     Active Substance: GABAPENTIN
     Indication: POST HERPETIC NEURALGIA
     Route: 048
     Dates: start: 20161001, end: 20161007

REACTIONS (5)
  - Sedation [None]
  - Therapy change [None]
  - Diplopia [None]
  - Constipation [None]
  - Therapy non-responder [None]

NARRATIVE: CASE EVENT DATE: 20161005
